FAERS Safety Report 21211697 (Version 2)
Quarter: 2022Q4

REPORT INFORMATION
  Report Type: Spontaneous
  Country: US (occurrence: US)
  Receive Date: 20220815
  Receipt Date: 20221004
  Transmission Date: 20230112
  Serious: Yes (Death, Other)
  Sender: FDA-Public Use
  Company Number: US-PFIZER INC-PV202200042387

PATIENT
  Age: 77 Year
  Sex: Female
  Weight: 95.692 kg

DRUGS (2)
  1. PAXLOVID [Suspect]
     Active Substance: NIRMATRELVIR\RITONAVIR
     Indication: COVID-19 treatment
     Dosage: 300-100 MG BID
     Route: 048
     Dates: start: 20220810, end: 20220810
  2. WARFARIN [Concomitant]
     Active Substance: WARFARIN
     Indication: Atrial fibrillation
     Dosage: UNK
     Dates: start: 20220810

REACTIONS (13)
  - Pericarditis adhesive [Fatal]
  - Cardiac arrest [Fatal]
  - Pulmonary oil microembolism [Fatal]
  - Pulmonary congestion [Fatal]
  - Sudden cardiac death [Fatal]
  - Coronary artery disease [Fatal]
  - Acute pulmonary oedema [Fatal]
  - Myocardial fibrosis [Fatal]
  - Bronchitis [Fatal]
  - Arteriosclerosis [Fatal]
  - Malaise [Unknown]
  - Vomiting [Unknown]
  - Respiration abnormal [Unknown]
